FAERS Safety Report 7222023-X (Version None)
Quarter: 2011Q1

REPORT INFORMATION
  Report Type: 
  Country: None (occurrence: None)
  Receive Date: 20110112
  Receipt Date: 20110102
  Transmission Date: 20110831
  Serious: Yes (Other)
  Sender: FDA-Public Use
  Company Number: CH-ELI_LILLY_AND_COMPANY-CH201012004756

PATIENT
  Age: 61 Year
  Sex: Female
  Weight: 80 kg

DRUGS (1)
  1. XIGRIS [Suspect]
     Indication: SEPSIS
     Dosage: 6000 UG, EVERY HOUR FOR 10 HOURS
     Route: 042
     Dates: start: 20101217, end: 20101218

REACTIONS (3)
  - SEPSIS [None]
  - COLITIS ISCHAEMIC [None]
  - OVERDOSE [None]
